FAERS Safety Report 6098699-X (Version None)
Quarter: 2009Q1

REPORT INFORMATION
  Report Type: 
  Country: None (occurrence: None)
  Receive Date: 20090302
  Receipt Date: 20090219
  Transmission Date: 20090719
  Serious: Yes (Hospitalization)
  Sender: FDA-Public Use
  Company Number: US-WATSON-2009-01253

PATIENT
  Age: 70 Year
  Sex: Female
  Weight: 74.83 kg

DRUGS (10)
  1. INFED [Suspect]
     Indication: IRON DEFICIENCY ANAEMIA
     Dosage: 200 MG WITH 100 CC NS (RECEIVED TOTAL OF 15 CC OR 30 MG)
     Route: 042
     Dates: start: 20090218, end: 20090218
  2. INFED [Suspect]
     Dosage: 400 MG IV WITH 100 CC NORMAL SALINE/15 MINUTES
     Route: 042
     Dates: start: 20081201, end: 20081201
  3. VYTORIN [Concomitant]
     Indication: DRUG USE FOR UNKNOWN INDICATION
     Dosage: UNK
     Route: 065
  4. KLOR-CON [Concomitant]
     Indication: DRUG USE FOR UNKNOWN INDICATION
     Dosage: UNK
     Route: 065
  5. LASIX [Concomitant]
     Indication: DRUG USE FOR UNKNOWN INDICATION
     Dosage: UNK
     Route: 065
  6. COLACE [Concomitant]
     Indication: DRUG USE FOR UNKNOWN INDICATION
     Dosage: UNK
     Route: 065
  7. VERAPAMIL [Concomitant]
     Indication: HYPERTENSION
     Dosage: UNK
     Route: 065
  8. ASPIRIN [Concomitant]
     Indication: DRUG USE FOR UNKNOWN INDICATION
     Dosage: UNK
     Route: 065
  9. INSULIN HUMALOG MIX [Concomitant]
     Indication: DRUG USE FOR UNKNOWN INDICATION
     Dosage: 75/25 BID
     Route: 065
  10. HYDROCHLOROTHIAZIDE [Concomitant]
     Indication: HYPERTENSION
     Dosage: UNK
     Route: 065

REACTIONS (16)
  - AMNESIA [None]
  - BLOOD CREATININE INCREASED [None]
  - BLOOD PRESSURE INCREASED [None]
  - CEREBRAL HAEMORRHAGE [None]
  - CEREBRAL ISCHAEMIA [None]
  - CONFUSIONAL STATE [None]
  - FOAMING AT MOUTH [None]
  - GRAND MAL CONVULSION [None]
  - HYPERTENSIVE EMERGENCY [None]
  - MALIGNANT HYPERTENSION [None]
  - NECK PAIN [None]
  - OEDEMA PERIPHERAL [None]
  - POSTICTAL STATE [None]
  - POSTURE ABNORMAL [None]
  - SYNCOPE [None]
  - URINARY INCONTINENCE [None]
